FAERS Safety Report 9412459 (Version 2)
Quarter: 2013Q3

REPORT INFORMATION
  Report Type: Spontaneous
  Country: US (occurrence: None)
  Receive Date: 20130702
  Receipt Date: 20130815
  Transmission Date: 20140515
  Serious: Yes (Hospitalization, Other)
  Sender: FDA-Public Use
  Company Number: ADR-2013-00982

PATIENT
  Age: 40 Year
  Sex: Male

DRUGS (1)
  1. GABLOFEN [Suspect]
     Indication: MUSCLE SPASTICITY

REACTIONS (16)
  - Muscle spasms [None]
  - Condition aggravated [None]
  - Urinary tract infection [None]
  - Hypotension [None]
  - Dyspnoea [None]
  - Loss of consciousness [None]
  - Oxygen saturation abnormal [None]
  - Somnolence [None]
  - Drug ineffective [None]
  - Burning sensation [None]
  - Abdominal pain upper [None]
  - No therapeutic response [None]
  - Dyspnoea [None]
  - Somnolence [None]
  - Loss of consciousness [None]
  - Performance status decreased [None]
